FAERS Safety Report 8840817 (Version 1)
Quarter: 2012Q4

REPORT INFORMATION
  Report Type: 
  Country: DE (occurrence: DE)
  Receive Date: 20121015
  Receipt Date: 20121015
  Transmission Date: 20130627
  Serious: Yes (Other)
  Sender: FDA-Public Use
  Company Number: DE-ROCHE-1126297

PATIENT
  Age: 72 Year
  Sex: Female
  Weight: 62 kg

DRUGS (1)
  1. BONVIVA [Suspect]
     Indication: OSTEOPOROSIS
     Route: 048
     Dates: start: 20120816, end: 20120823

REACTIONS (6)
  - Nausea [Recovering/Resolving]
  - Pyrexia [Recovering/Resolving]
  - Influenza like illness [Unknown]
  - Abdominal pain [Recovering/Resolving]
  - Flatulence [Unknown]
  - Abdominal distension [Unknown]
